FAERS Safety Report 25111680 (Version 2)
Quarter: 2025Q1

REPORT INFORMATION
  Report Type: Spontaneous
  Country: US (occurrence: US)
  Receive Date: 20250324
  Receipt Date: 20250325
  Transmission Date: 20250409
  Serious: No
  Sender: PFIZER
  Company Number: US-PFIZER INC-202500060935

PATIENT
  Age: 59 Year
  Sex: Female
  Weight: 58.97 kg

DRUGS (2)
  1. DUAVEE [Suspect]
     Active Substance: BAZEDOXIFENE ACETATE\ESTROGENS, CONJUGATED
     Indication: Hot flush
     Dosage: 0.45MG/20MG, 1 TABLET 1X/DAY
     Route: 048
     Dates: start: 20250124
  2. ONABOTULINUMTOXINA [Concomitant]
     Active Substance: ONABOTULINUMTOXINA
     Indication: Migraine

REACTIONS (1)
  - Therapeutic product effect incomplete [Recovering/Resolving]
